FAERS Safety Report 22062359 (Version 1)
Quarter: 2023Q1

REPORT INFORMATION
  Report Type: Spontaneous
  Country: US (occurrence: US)
  Receive Date: 20230305
  Receipt Date: 20230305
  Transmission Date: 20230418
  Serious: No
  Sender: FDA-Public Use
  Company Number: US-JNJFOC-20230249194

PATIENT
  Age: 51 Year
  Sex: Female

DRUGS (1)
  1. ROGAINE [Suspect]
     Active Substance: MINOXIDIL
     Indication: Alopecia
     Dosage: DOSE- IT WAS THE THE CYLINDER OFF THAT PATIENT PUT IT INTO AND PATIENT PUT IT IN HANDS.?FREQUENCY- C
     Route: 065
     Dates: start: 201912

REACTIONS (2)
  - Alopecia [Recovered/Resolved]
  - Product use in unapproved indication [Unknown]

NARRATIVE: CASE EVENT DATE: 20191201
